FAERS Safety Report 8141994-0 (Version None)
Quarter: 2012Q1

REPORT INFORMATION
  Report Type: 
  Country: None (occurrence: None)
  Receive Date: 20120216
  Receipt Date: 20120214
  Transmission Date: 20120608
  Serious: Yes (Hospitalization)
  Sender: FDA-Public Use
  Company Number: US-PFIZER INC-2012040572

PATIENT
  Sex: Female
  Weight: 54.422 kg

DRUGS (6)
  1. WELCHOL [Concomitant]
     Indication: BLOOD CHOLESTEROL INCREASED
     Dosage: 225 MG, UNK
  2. ZYPREXA [Concomitant]
     Indication: NERVOUS SYSTEM DISORDER
     Dosage: 15 MG, UNK
  3. DICYCLOMINE [Suspect]
     Indication: DIARRHOEA
     Dosage: UNK
  4. ZYPREXA [Concomitant]
     Indication: BIPOLAR DISORDER
  5. CHANTIX [Suspect]
     Indication: SMOKING CESSATION THERAPY
     Dosage: UNK
     Route: 048
  6. ZYPREXA [Concomitant]
     Indication: ANXIETY

REACTIONS (8)
  - VISUAL IMPAIRMENT [None]
  - ANXIETY [None]
  - MALAISE [None]
  - TOBACCO USER [None]
  - WEIGHT DECREASED [None]
  - DIARRHOEA [None]
  - IRRITABLE BOWEL SYNDROME [None]
  - DRUG INEFFECTIVE [None]
